FAERS Safety Report 24910163 (Version 2)
Quarter: 2025Q1

REPORT INFORMATION
  Report Type: Report from Study
  Country: US (occurrence: US)
  Receive Date: 20250131
  Receipt Date: 20250204
  Transmission Date: 20250408
  Serious: Yes (Death, Other)
  Sender: TAKEDA
  Company Number: US-TAKEDA-2025TUS010691

PATIENT
  Age: 70 Year
  Sex: Male
  Weight: 103 kg

DRUGS (5)
  1. LANTHANUM CARBONATE [Suspect]
     Active Substance: LANTHANUM CARBONATE
     Indication: Blood potassium abnormal
  2. WARFARIN [Concomitant]
     Active Substance: WARFARIN
  3. METOPROLOL [Concomitant]
     Active Substance: METOPROLOL
  4. GLIPIZIDE [Concomitant]
     Active Substance: GLIPIZIDE
  5. ISOSORBIDE [Concomitant]
     Active Substance: ISOSORBIDE

REACTIONS (1)
  - Death [Fatal]

NARRATIVE: CASE EVENT DATE: 20250123
